FAERS Safety Report 10286751 (Version 2)
Quarter: 2014Q3

REPORT INFORMATION
  Report Type: Spontaneous
  Country: CN (occurrence: CN)
  Receive Date: 20140709
  Receipt Date: 20140924
  Transmission Date: 20150326
  Serious: Yes (Other)
  Sender: FDA-Public Use
  Company Number: CN-ABBVIE-14K-035-1256050-00

PATIENT
  Age: 52 Year
  Sex: Female

DRUGS (2)
  1. DEPAKINE CHRONO [Suspect]
     Active Substance: VALPROATE SODIUM
     Indication: EPILEPSY
     Dosage: 1000 MG IN MORNING, 500 MG IN EVENING
     Route: 048
     Dates: start: 20140610, end: 20140629
  2. DEPAKINE CHRONO [Suspect]
     Active Substance: VALPROATE SODIUM
     Dosage: TABLET EXTENDED RELEASE
     Route: 048
     Dates: start: 20140630

REACTIONS (8)
  - Foaming at mouth [Unknown]
  - Product counterfeit [Unknown]
  - Dermatitis allergic [Unknown]
  - Loss of consciousness [Unknown]
  - Bruxism [Unknown]
  - Rash erythematous [Unknown]
  - Pruritus [Unknown]
  - Epilepsy [Recovered/Resolved]

NARRATIVE: CASE EVENT DATE: 20140629
